FAERS Safety Report 19503717 (Version 1)
Quarter: 2021Q3

REPORT INFORMATION
  Report Type: Spontaneous
  Country: CN (occurrence: CN)
  Receive Date: 20210707
  Receipt Date: 20210707
  Transmission Date: 20211014
  Serious: Yes (Other)
  Sender: FDA-Public Use
  Company Number: NVSC2021CN149495

PATIENT
  Age: 8 Year
  Sex: Female
  Weight: 25 kg

DRUGS (2)
  1. PRANOPROFEN [Suspect]
     Active Substance: PRANOPROFEN
     Indication: CONJUNCTIVITIS
     Dosage: 0.050 ML, QID(EYE DROPS)
     Route: 047
     Dates: start: 20210613, end: 20210613
  2. EMEDASTINE FUMARATE [Suspect]
     Active Substance: EMEDASTINE DIFUMARATE
     Indication: CONJUNCTIVITIS
     Dosage: 0.05 ML, BID
     Route: 047
     Dates: start: 20210613, end: 20210613

REACTIONS (4)
  - Erythema [Recovering/Resolving]
  - Rash [Recovering/Resolving]
  - Skin swelling [Recovering/Resolving]
  - Eye pain [Recovering/Resolving]

NARRATIVE: CASE EVENT DATE: 20210613
